FAERS Safety Report 10955433 (Version 2)
Quarter: 2016Q4

REPORT INFORMATION
  Report Type: Report from Study
  Country: CZ (occurrence: CZ)
  Receive Date: 20150326
  Receipt Date: 20161024
  Transmission Date: 20170206
  Serious: Yes (Hospitalization)
  Sender: FDA-Public Use
  Company Number: CZ-ROCHE-1013692

PATIENT
  Age: 67 Year
  Sex: Male
  Weight: 100 kg

DRUGS (20)
  1. SOLU-MEDROL [Concomitant]
     Active Substance: METHYLPREDNISOLONE SODIUM SUCCINATE
     Indication: INFUSION RELATED REACTION
     Route: 065
     Dates: start: 20111104, end: 20111104
  2. HYDROCORTISONE. [Concomitant]
     Active Substance: HYDROCORTISONE
     Route: 042
     Dates: start: 20111111, end: 20111111
  3. OBINUTUZUMAB [Suspect]
     Active Substance: OBINUTUZUMAB
     Indication: DIFFUSE LARGE B-CELL LYMPHOMA
     Dosage: CONCENTRATION: 4MG/ML, VOLUME 250 ML, LAST DOSE PRIOR TO SAE: 04 NOV 2011
     Route: 042
     Dates: start: 20111104, end: 20111104
  4. HYDROCORTISONE. [Concomitant]
     Active Substance: HYDROCORTISONE
     Indication: PROPHYLAXIS
     Route: 042
     Dates: start: 20111104, end: 20111104
  5. CYCLOPHOSPHAMIDE. [Suspect]
     Active Substance: CYCLOPHOSPHAMIDE
     Indication: DIFFUSE LARGE B-CELL LYMPHOMA
     Dosage: LAST DOSE PRIOR TO SAE: 04 NOV 2011
     Route: 042
     Dates: start: 20111104, end: 20111104
  6. PREDNISONE. [Suspect]
     Active Substance: PREDNISONE
     Indication: DIFFUSE LARGE B-CELL LYMPHOMA
     Dosage: LAST DOSE PRIOR TO SAE: 08 NOV 2011
     Route: 048
     Dates: start: 20111104, end: 20111108
  7. DITHIADEN [Concomitant]
     Active Substance: BISULEPIN
     Route: 065
     Dates: start: 20111111, end: 20111111
  8. PARALEN (CZECH REPUBLIC) [Concomitant]
     Indication: PROPHYLAXIS
     Route: 065
     Dates: start: 20111104, end: 20111104
  9. ONDEMET [Concomitant]
     Indication: PROPHYLAXIS
     Route: 065
     Dates: start: 20111104, end: 20111104
  10. ESSENTIAL FORTE (POLYENEPHOSPHATIDYL CHOLINE) [Concomitant]
     Indication: TRANSAMINASES INCREASED
     Route: 065
     Dates: start: 20111111, end: 20120309
  11. KALNORMIN [Concomitant]
     Active Substance: POTASSIUM CHLORIDE
     Indication: PROPHYLAXIS
     Route: 065
     Dates: start: 20111117, end: 20111117
  12. VINCRISTINE [Suspect]
     Active Substance: VINCRISTINE
     Indication: DIFFUSE LARGE B-CELL LYMPHOMA
     Dosage: LAST DATE PRIOR TO SAE: 04 NOV 2011
     Route: 042
     Dates: start: 20111104, end: 20111104
  13. HELICID [Concomitant]
     Indication: PROPHYLAXIS
     Route: 065
     Dates: start: 20111104, end: 20120415
  14. DITHIADEN [Concomitant]
     Active Substance: BISULEPIN
     Indication: PROPHYLAXIS
     Route: 065
     Dates: start: 20111104, end: 20111104
  15. DOXORUBICIN [Suspect]
     Active Substance: DOXORUBICIN
     Indication: DIFFUSE LARGE B-CELL LYMPHOMA
     Dosage: LAST DOSE PRIOR TO SAE: 04 NOV 2011
     Route: 042
     Dates: start: 20111104, end: 20111104
  16. DEGAN [Concomitant]
     Active Substance: METOCLOPRAMIDE HYDROCHLORIDE
     Indication: PROPHYLAXIS
     Route: 065
     Dates: start: 20111104, end: 20111104
  17. MILURIT [Concomitant]
     Active Substance: ALLOPURINOL
     Indication: PROPHYLAXIS
     Route: 065
     Dates: start: 20111104, end: 20120415
  18. OBINUTUZUMAB [Suspect]
     Active Substance: OBINUTUZUMAB
     Route: 042
     Dates: start: 20111111
  19. NOVALGIN (CZECH REPUBLIC) [Concomitant]
     Indication: INFUSION RELATED REACTION
     Route: 065
     Dates: start: 20111104, end: 20111104
  20. LACTULOSE. [Concomitant]
     Active Substance: LACTULOSE
     Indication: HAEMORRHOIDS
     Route: 065
     Dates: start: 20111113, end: 20111113

REACTIONS (1)
  - Enterobacter infection [Recovered/Resolved]

NARRATIVE: CASE EVENT DATE: 20111110
